FAERS Safety Report 4365957-6 (Version None)
Quarter: 2004Q2

REPORT INFORMATION
  Report Type: 
  Country: None (occurrence: None)
  Receive Date: 20040527
  Receipt Date: 20040224
  Transmission Date: 20050107
  Serious: No
  Sender: FDA-Public Use
  Company Number: US-GLAXOSMITHKLINE-A0499635A

PATIENT
  Age: 85 Year
  Sex: Male

DRUGS (3)
  1. LANOXIN [Suspect]
     Indication: ATRIAL FIBRILLATION
     Dosage: .25MG PER DAY
     Route: 048
     Dates: start: 20000201
  2. HYTRIN [Concomitant]
  3. LASIX [Concomitant]

REACTIONS (2)
  - ASTHENIA [None]
  - DECREASED APPETITE [None]
